FAERS Safety Report 21536452 (Version 1)
Quarter: 2022Q4

REPORT INFORMATION
  Report Type: Spontaneous
  Country: US (occurrence: None)
  Receive Date: 20221031
  Receipt Date: 20221031
  Transmission Date: 20230113
  Serious: Yes (Life-Threatening, Hospitalization)
  Sender: FDA-Public Use
  Company Number: None

PATIENT

DRUGS (1)
  1. WARFARIN [Suspect]
     Active Substance: WARFARIN

REACTIONS (5)
  - Haematoma [None]
  - International normalised ratio increased [None]
  - Haemoglobin decreased [None]
  - Haematocrit decreased [None]
  - Haemorrhage [None]

NARRATIVE: CASE EVENT DATE: 20210205
